FAERS Safety Report 7446210-0 (Version None)
Quarter: 2011Q2

REPORT INFORMATION
  Report Type: 
  Country: None (occurrence: None)
  Receive Date: 20110429
  Receipt Date: 20110419
  Transmission Date: 20111010
  Serious: No
  Sender: FDA-Public Use
  Company Number: AU-JNJFOC-20110200403

PATIENT
  Sex: Male

DRUGS (7)
  1. LIPEX [Concomitant]
     Route: 065
  2. DURAGESIC-100 [Suspect]
     Indication: OSTEOARTHRITIS
     Route: 062
  3. DURAGESIC-100 [Suspect]
     Route: 062
  4. DURAGESIC-100 [Suspect]
     Route: 062
  5. DURAGESIC-100 [Suspect]
     Route: 062
  6. TRAMADOL [Concomitant]
     Indication: BREAKTHROUGH PAIN
     Route: 065
  7. ASPIRIN [Concomitant]
     Route: 065

REACTIONS (3)
  - WRONG TECHNIQUE IN DRUG USAGE PROCESS [None]
  - DRUG INEFFECTIVE [None]
  - PRODUCT QUALITY ISSUE [None]
